FAERS Safety Report 16471523 (Version 1)
Quarter: 2019Q2

REPORT INFORMATION
  Report Type: Spontaneous
  Country: CN (occurrence: CN)
  Receive Date: 20190624
  Receipt Date: 20190624
  Transmission Date: 20190711
  Serious: Yes (Other)
  Sender: FDA-Public Use
  Company Number: CN-TOPROL ACQUISITION LLC-2019-TOP-000442

PATIENT
  Age: 59 Year
  Sex: Female

DRUGS (3)
  1. METOPROLOL SUCCINATE. [Suspect]
     Active Substance: METOPROLOL SUCCINATE
     Indication: HYPERTENSION
     Dosage: UNK
     Route: 048
  2. IRESSA [Suspect]
     Active Substance: GEFITINIB
     Indication: LUNG ADENOCARCINOMA
     Dosage: UNK
     Route: 048
     Dates: start: 2017
  3. LEVAMLODIPINE BESYLATE [Concomitant]
     Active Substance: LEVAMLODIPINE BESYLATE
     Indication: HYPERTENSION

REACTIONS (9)
  - Lung adenocarcinoma [Unknown]
  - Rash [Unknown]
  - Diarrhoea [Recovered/Resolved]
  - Bradycardia [Unknown]
  - Nail disorder [Unknown]
  - Eye pruritus [Unknown]
  - Potentiating drug interaction [Unknown]
  - Skin injury [Unknown]
  - Visual impairment [Unknown]
